FAERS Safety Report 7002128-9 (Version None)
Quarter: 2010Q3

REPORT INFORMATION
  Report Type: 
  Country: None (occurrence: None)
  Receive Date: 20100920
  Receipt Date: 20100311
  Transmission Date: 20110219
  Serious: Yes (Other)
  Sender: FDA-Public Use
  Company Number: US-ASTRAZENECA-2009UW20736

PATIENT
  Sex: Female

DRUGS (10)
  1. SEROQUEL [Suspect]
     Route: 048
  2. HYDROCODONE BITARTRATE AND ACETAMINOPHEN [Concomitant]
     Dosage: 7.5/500
     Dates: start: 20040101
  3. OXYCODONE AND ACETAMINOPHEN [Concomitant]
     Dosage: 5/325
     Dates: start: 20040101
  4. METOCLOPRAMIDE [Concomitant]
     Dates: start: 20050101
  5. DIAZEPAM [Concomitant]
     Dosage: 2 TO 5 MG.
     Dates: start: 20050101
  6. CIPROFLOXACIN HCL [Concomitant]
     Dates: start: 20050101
  7. PROPOXYPHENE NAPSYLATE AND ACETAMINOPHEN [Concomitant]
     Dosage: 100-650
     Dates: start: 20050101
  8. OXYCODONE HCL AND ACETAMINOPHEN [Concomitant]
     Dosage: 7.5/500 MG
     Dates: start: 20050101
  9. AMOXICILLIN [Concomitant]
     Dates: start: 20050101
  10. ZITHROMAX [Concomitant]
     Dates: start: 20040101

REACTIONS (3)
  - DIABETES MELLITUS [None]
  - KETOACIDOSIS [None]
  - PANCREATITIS [None]
